FAERS Safety Report 24576265 (Version 1)
Quarter: 2024Q4

REPORT INFORMATION
  Report Type: Spontaneous
  Country: US (occurrence: None)
  Receive Date: 20241103
  Receipt Date: 20241103
  Transmission Date: 20250114
  Serious: Yes (Disabling)
  Sender: Public
  Company Number: None

PATIENT
  Age: 57 Year
  Sex: Male

DRUGS (1)
  1. CRESTOR [Suspect]
     Active Substance: ROSUVASTATIN CALCIUM
     Dosage: OTHER QUANTITY : 1 TABLET(S);?FREQUENCY : DAILY;?
     Route: 048
     Dates: start: 20240819, end: 20241014

REACTIONS (6)
  - Arthralgia [None]
  - Myalgia [None]
  - Decreased activity [None]
  - Gait inability [None]
  - Pain in extremity [None]
  - Muscle spasms [None]

NARRATIVE: CASE EVENT DATE: 20241012
